FAERS Safety Report 23677557 (Version 2)
Quarter: 2024Q2

REPORT INFORMATION
  Report Type: Spontaneous
  Country: NL (occurrence: NL)
  Receive Date: 20240327
  Receipt Date: 20240411
  Transmission Date: 20240716
  Serious: Yes (Hospitalization)
  Sender: FDA-Public Use
  Company Number: NL-LEO Pharma-368920

PATIENT
  Age: 42 Year
  Sex: Male

DRUGS (1)
  1. ADBRY [Suspect]
     Active Substance: TRALOKINUMAB-LDRM
     Indication: Product used for unknown indication
     Dosage: 3RD INJECTION

REACTIONS (6)
  - Tremor [Unknown]
  - Hyperhidrosis [Unknown]
  - Shock [Unknown]
  - Dizziness [Unknown]
  - Tremor [Unknown]
  - Pallor [Unknown]
